FAERS Safety Report 7484909-0 (Version None)
Quarter: 2011Q2

REPORT INFORMATION
  Report Type: 
  Country: None (occurrence: None)
  Receive Date: 20110517
  Receipt Date: 20110511
  Transmission Date: 20111010
  Serious: Yes (Hospitalization)
  Sender: FDA-Public Use
  Company Number: B0698185A

PATIENT
  Age: 2 Month

DRUGS (2)
  1. VENTOLIN [Suspect]
     Indication: BRONCHIOLITIS
     Dosage: .1ML PER DAY
     Route: 055
     Dates: start: 20110130, end: 20110202
  2. INTAL [Concomitant]
     Indication: BRONCHIOLITIS
     Route: 055
     Dates: start: 20110130, end: 20110202

REACTIONS (1)
  - VENTRICULAR TACHYCARDIA [None]
